FAERS Safety Report 4975916-8 (Version None)
Quarter: 2006Q2

REPORT INFORMATION
  Report Type: 
  Country: None (occurrence: None)
  Receive Date: 20060404
  Receipt Date: 20060320
  Transmission Date: 20061013
  Serious: Yes (Hospitalization, Other)
  Sender: FDA-Public Use
  Company Number: 2006BH004879

PATIENT
  Age: 83 Year
  Sex: Male
  Weight: 50 kg

DRUGS (19)
  1. BUMINATE 25% [Suspect]
     Indication: HYPOALBUMINAEMIA
     Dosage: 50 ML; EVERY DAY; IVDRI
     Dates: start: 20060303, end: 20060305
  2. LASIX [Concomitant]
  3. LACTEC [Concomitant]
  4. DOPAMINE [Concomitant]
  5. CYANOCOBALAMIN [Concomitant]
  6. PHENOBAL [Concomitant]
  7. ZYLORIC [Concomitant]
  8. KODESORUVAN [Concomitant]
  9. FRANDOLTAPE-S [Concomitant]
  10. TSUMURA SEIHAITOU (HERBAL MEDICINE) [Concomitant]
  11. GASTROM [Concomitant]
  12. CALBLOCK [Concomitant]
  13. OLMETEC [Concomitant]
  14. VEEN-D [Concomitant]
  15. SOLDEM 3A [Concomitant]
  16. LACTEC D [Concomitant]
  17. INOVAN [Concomitant]
  18. DIGOSIN [Concomitant]
  19. TIENAM [Concomitant]

REACTIONS (8)
  - ANURIA [None]
  - CARDIAC FAILURE [None]
  - DRUG INEFFECTIVE [None]
  - OEDEMA [None]
  - OXYGEN SATURATION DECREASED [None]
  - PULMONARY OEDEMA [None]
  - PYREXIA [None]
  - WHITE BLOOD CELL COUNT INCREASED [None]
